FAERS Safety Report 21340541 (Version 3)
Quarter: 2022Q4

REPORT INFORMATION
  Report Type: Report from Study
  Country: CA (occurrence: CA)
  Receive Date: 20220916
  Receipt Date: 20221128
  Transmission Date: 20230112
  Serious: Yes (Other)
  Sender: FDA-Public Use
  Company Number: CA-NOVARTISPH-NVSC2022CA207181

PATIENT
  Sex: Male

DRUGS (2)
  1. HYRIMOZ [Suspect]
     Active Substance: ADALIMUMAB-ADAZ
     Indication: Crohn^s disease
     Dosage: 40 MG, Q2W
     Route: 058
     Dates: start: 20220129
  2. HYRIMOZ [Suspect]
     Active Substance: ADALIMUMAB-ADAZ
     Indication: Colitis ulcerative
     Dosage: UNK
     Route: 065
     Dates: start: 20220910

REACTIONS (9)
  - Throat cancer [Unknown]
  - Oropharyngeal discomfort [Unknown]
  - Increased viscosity of bronchial secretion [Unknown]
  - Cough [Unknown]
  - Taste disorder [Unknown]
  - Muscular weakness [Unknown]
  - Diarrhoea [Unknown]
  - Pharyngitis [Unknown]
  - Hypoaesthesia [Unknown]
